FAERS Safety Report 25585835 (Version 2)
Quarter: 2025Q3

REPORT INFORMATION
  Report Type: Spontaneous
  Country: US (occurrence: US)
  Receive Date: 20250721
  Receipt Date: 20250925
  Transmission Date: 20251021
  Serious: No
  Sender: BECTON DICKINSON
  Company Number: US-BECTON DICKINSON-US-BD-25-000334

PATIENT

DRUGS (1)
  1. PURPREP [Suspect]
     Active Substance: ISOPROPYL ALCOHOL\POVIDONE-IODINE
     Indication: Product used for unknown indication
     Route: 065

REACTIONS (1)
  - Product contamination physical [Unknown]

NARRATIVE: CASE EVENT DATE: 20250626
